FAERS Safety Report 7962952-2 (Version None)
Quarter: 2011Q4

REPORT INFORMATION
  Report Type: 
  Country: None (occurrence: None)
  Receive Date: 20111207
  Receipt Date: 20111128
  Transmission Date: 20120403
  Serious: Yes (Other)
  Sender: FDA-Public Use
  Company Number: US-ASTRAZENECA-2010SE24928

PATIENT
  Age: 73 Year
  Sex: Female
  Weight: 45.4 kg

DRUGS (7)
  1. RECLAST [Concomitant]
     Indication: BONE DISORDER
  2. CRESTOR [Suspect]
     Indication: HYPERCHOLESTEROLAEMIA
     Route: 048
     Dates: start: 20100501
  3. NEXIUM [Suspect]
     Route: 048
  4. FISH OIL [Concomitant]
  5. ARIMIDEX [Suspect]
     Indication: BREAST CANCER
     Route: 048
     Dates: start: 20070101
  6. CALCIUM [Concomitant]
  7. ATENOLOL [Concomitant]
     Indication: HYPERTENSION

REACTIONS (8)
  - FLATULENCE [None]
  - NAUSEA [None]
  - HAIR DISORDER [None]
  - ASTHENIA [None]
  - ANEURYSM [None]
  - IRRITABILITY [None]
  - ABDOMINAL DISTENSION [None]
  - DRY SKIN [None]
